FAERS Safety Report 9363340 (Version 1)
Quarter: 2013Q2

REPORT INFORMATION
  Report Type: Spontaneous
  Country: US (occurrence: US)
  Receive Date: 20130624
  Receipt Date: 20130624
  Transmission Date: 20140414
  Serious: Yes (Death)
  Sender: FDA-Public Use
  Company Number: US-JNJFOC-20130613360

PATIENT
  Sex: 0

DRUGS (4)
  1. DOXORUBICIN [Suspect]
     Indication: HER-2 POSITIVE BREAST CANCER
     Dosage: 4 CYCLES
     Route: 042
  2. CYCLOPHOSPHAMIDE [Suspect]
     Indication: HER-2 POSITIVE BREAST CANCER
     Dosage: 4 CYCLES
     Route: 065
  3. PACLITAXEL [Suspect]
     Indication: HER-2 POSITIVE BREAST CANCER
     Dosage: 12 CYCLES
     Route: 065
  4. RADIOTHERAPY [Suspect]
     Indication: HER-2 POSITIVE BREAST CANCER
     Dosage: 45.0 TO 50.4 GY IN 25 TO 28 FRACTIONS OF 1.8 TO 2.0 GY
     Route: 065

REACTIONS (1)
  - Cardiac death [Fatal]
